FAERS Safety Report 10649748 (Version 1)
Quarter: 2014Q4

REPORT INFORMATION
  Report Type: Spontaneous
  Country: US (occurrence: US)
  Receive Date: 20141212
  Receipt Date: 20141212
  Transmission Date: 20150529
  Serious: Yes (Other)
  Sender: FDA-Public Use
  Company Number: US-BAYER-2014-181331

PATIENT
  Sex: Female

DRUGS (1)
  1. MIRENA [Suspect]
     Active Substance: LEVONORGESTREL
     Dosage: 20 MCG/24HR, CONT
     Route: 015

REACTIONS (7)
  - Endometriosis [None]
  - Uterine leiomyoma [None]
  - Injury [None]
  - Pelvic pain [None]
  - Pelvic adhesions [None]
  - Ovarian cyst ruptured [None]
  - Abdominal pain [None]
